FAERS Safety Report 9704772 (Version 1)
Quarter: 2013Q4

REPORT INFORMATION
  Report Type: Spontaneous
  Country: GR (occurrence: GR)
  Receive Date: 20131122
  Receipt Date: 20131122
  Transmission Date: 20140711
  Serious: Yes (Hospitalization)
  Sender: FDA-Public Use
  Company Number: PHHY2013GR131640

PATIENT
  Age: 67 Year
  Sex: Male

DRUGS (7)
  1. SINTROM [Suspect]
  2. DIGOXIN [Suspect]
  3. NEXIUM [Concomitant]
  4. FRUMIL [Concomitant]
  5. DEPAKINE [Concomitant]
  6. LADOSE [Concomitant]
  7. MYSOLINE [Concomitant]

REACTIONS (2)
  - Haematocrit decreased [Unknown]
  - International normalised ratio fluctuation [Unknown]
